FAERS Safety Report 21952501 (Version 1)
Quarter: 2023Q1

REPORT INFORMATION
  Report Type: Spontaneous
  Country: JP (occurrence: JP)
  Receive Date: 20230203
  Receipt Date: 20230203
  Transmission Date: 20230418
  Serious: Yes (Other)
  Sender: FDA-Public Use
  Company Number: JP-Merck Healthcare KGaA-9379884

PATIENT
  Age: 73 Year
  Sex: Female

DRUGS (2)
  1. ERBITUX [Suspect]
     Active Substance: CETUXIMAB
     Indication: Squamous cell carcinoma of the tongue
     Dosage: UNK UNK, UNKNOWN
     Route: 041
  2. PACLITAXEL [Concomitant]
     Active Substance: PACLITAXEL
     Indication: Squamous cell carcinoma of the tongue
     Dosage: UNK UNK, UNKNOWN
     Route: 065

REACTIONS (2)
  - Metastases to lymph nodes [Recovering/Resolving]
  - Metastases to soft tissue [Recovering/Resolving]
